FAERS Safety Report 25459795 (Version 1)
Quarter: 2025Q2

REPORT INFORMATION
  Report Type: Spontaneous
  Country: GB (occurrence: GB)
  Receive Date: 20250620
  Receipt Date: 20250620
  Transmission Date: 20250716
  Serious: Yes (Disabling, Other)
  Sender: RANBAXY
  Company Number: GB-MHRA-MED-202506052251187080-NMDHS

PATIENT
  Age: 17 Year
  Sex: Male
  Weight: 70 kg

DRUGS (1)
  1. ISOTRETINOIN [Suspect]
     Active Substance: ISOTRETINOIN
     Indication: Acne
     Dosage: 50 MILLIGRAM, DAILY
     Route: 065
     Dates: start: 20250120

REACTIONS (5)
  - Brain fog [Not Recovered/Not Resolved]
  - Arthralgia [Not Recovered/Not Resolved]
  - Blunted affect [Not Recovered/Not Resolved]
  - Fatigue [Not Recovered/Not Resolved]
  - Dry skin [Not Recovered/Not Resolved]
